FAERS Safety Report 12997790 (Version 2)
Quarter: 2016Q4

REPORT INFORMATION
  Report Type: Report from Study
  Country: GT (occurrence: GT)
  Receive Date: 20161205
  Receipt Date: 20161219
  Transmission Date: 20170207
  Serious: Yes (Death)
  Sender: FDA-Public Use
  Company Number: PHHY2016GT166149

PATIENT
  Age: 46 Year
  Sex: Male

DRUGS (1)
  1. SANDOSTATIN LAR DEPOT [Suspect]
     Active Substance: OCTREOTIDE ACETATE
     Indication: HEPATIC CANCER
     Route: 065

REACTIONS (4)
  - Decreased appetite [Unknown]
  - Product use issue [Unknown]
  - Death [Fatal]
  - Aphasia [Unknown]

NARRATIVE: CASE EVENT DATE: 20161116
